FAERS Safety Report 5231268-X (Version None)
Quarter: 2007Q1

REPORT INFORMATION
  Report Type: 
  Country: None (occurrence: None)
  Receive Date: 20070202
  Receipt Date: 20070119
  Transmission Date: 20070707
  Serious: Yes (Other)
  Sender: FDA-Public Use
  Company Number: 1022556-2007-00015

PATIENT
  Sex: Female
  Weight: 70.7611 kg

DRUGS (5)
  1. UNISOM [Suspect]
     Indication: SLEEP DISORDER THERAPY
     Dosage: 1/2 TAB DAILY, ORAL
     Route: 048
     Dates: start: 20061215
  2. BETAGAN [Concomitant]
  3. SYNTHROID [Concomitant]
  4. PREMARIN [Concomitant]
  5. ANDEROL [Concomitant]

REACTIONS (6)
  - ASTHENIA [None]
  - COMPUTERISED TOMOGRAM ABNORMAL [None]
  - FEELING ABNORMAL [None]
  - HYPERSOMNIA [None]
  - HYPOAESTHESIA [None]
  - PARAESTHESIA [None]
